FAERS Safety Report 16636973 (Version 2)
Quarter: 2019Q3

REPORT INFORMATION
  Report Type: Spontaneous
  Country: CN (occurrence: CN)
  Receive Date: 20190726
  Receipt Date: 20190730
  Transmission Date: 20191004
  Serious: Yes (Death)
  Sender: FDA-Public Use
  Company Number: CN-ASTRAZENECA-2019SF06449

PATIENT
  Sex: Female
  Weight: 25 kg

DRUGS (1)
  1. LYNPARZA [Suspect]
     Active Substance: OLAPARIB
     Indication: FALLOPIAN TUBE CANCER
     Dosage: 300 MG TWICE A DAY
     Route: 048

REACTIONS (7)
  - Abdominal distension [Not Recovered/Not Resolved]
  - Feeding disorder [Fatal]
  - Vomiting [Not Recovered/Not Resolved]
  - Recurrent cancer [Fatal]
  - Haematemesis [Fatal]
  - Cardiac failure [Fatal]
  - Hepatic function abnormal [Not Recovered/Not Resolved]
